FAERS Safety Report 11185194 (Version 6)
Quarter: 2015Q3

REPORT INFORMATION
  Report Type: Report from Study
  Country: US (occurrence: US)
  Receive Date: 20150612
  Receipt Date: 20150805
  Transmission Date: 20151125
  Serious: Yes (Hospitalization)
  Sender: FDA-Public Use
  Company Number: US-PFIZER INC-2015183475

PATIENT
  Age: 27 Year
  Sex: Female
  Weight: 70 kg

DRUGS (10)
  1. SERTRALINE HCL [Suspect]
     Active Substance: SERTRALINE HYDROCHLORIDE
     Indication: MAJOR DEPRESSION
     Dosage: 100 MG, EVERY MORNING
     Route: 048
     Dates: start: 20150112, end: 20150116
  2. OLANZAPINE. [Suspect]
     Active Substance: OLANZAPINE
     Dosage: 12.5 MG, AT NIGHT
     Route: 048
     Dates: start: 20150217, end: 20150218
  3. BLINDED THERAPY [Suspect]
     Active Substance: INVESTIGATIONAL PRODUCT
     Indication: MAJOR DEPRESSION
     Dosage: BLINDED THERAPY, AT NIGHT
     Route: 048
     Dates: start: 20150512, end: 201505
  4. OLANZAPINE. [Suspect]
     Active Substance: OLANZAPINE
     Dosage: 15 MG, AT NIGHT
     Route: 048
     Dates: start: 20150120, end: 20150216
  5. OLANZAPINE. [Suspect]
     Active Substance: OLANZAPINE
     Dosage: 10 MG, AT NIGHT
     Route: 048
     Dates: start: 20150219, end: 20150312
  6. ATIVAN [Concomitant]
     Active Substance: LORAZEPAM
     Indication: PANIC ATTACK
     Dosage: UNK
     Route: 048
     Dates: start: 20150519
  7. TYLENOL [Concomitant]
     Active Substance: ACETAMINOPHEN
     Indication: CLUSTER HEADACHE
     Dosage: UNK
     Route: 048
     Dates: start: 2011
  8. OLANZAPINE. [Suspect]
     Active Substance: OLANZAPINE
     Indication: MAJOR DEPRESSION
     Dosage: 20 MG, AT NIGHT
     Route: 048
     Dates: start: 20150112, end: 20150119
  9. SERTRALINE HCL [Suspect]
     Active Substance: SERTRALINE HYDROCHLORIDE
     Dosage: 150 MG, EVERY MORNING
     Route: 048
     Dates: start: 20150117, end: 201505
  10. OLANZAPINE. [Suspect]
     Active Substance: OLANZAPINE
     Dosage: 5 MG, AT NIGHT
     Route: 048
     Dates: start: 20150313, end: 20150511

REACTIONS (3)
  - Condition aggravated [Recovered/Resolved]
  - Major depression [Recovered/Resolved]
  - Suicidal ideation [Recovered/Resolved]

NARRATIVE: CASE EVENT DATE: 20150524
